FAERS Safety Report 4341902-4 (Version None)
Quarter: 2004Q2

REPORT INFORMATION
  Report Type: 
  Country: None (occurrence: None)
  Receive Date: 20040420
  Receipt Date: 20031211
  Transmission Date: 20050107
  Serious: Yes (Disabling, Other)
  Sender: FDA-Public Use
  Company Number: US-BRISTOL-MYERS SQUIBB COMPANY-12455879

PATIENT
  Age: 54 Year
  Sex: Male

DRUGS (4)
  1. SERZONE [Suspect]
     Indication: DYSTHYMIC DISORDER
     Dosage: TAPERED OFF TO 75 MG A WEEK BEFORE DISCONTINUING AT THE END OF AUG BEGINNING OF SEPT. 2003
     Route: 048
     Dates: start: 19970209, end: 20030801
  2. SERZONE [Suspect]
     Indication: DEPRESSION
     Dosage: TAPERED OFF TO 75 MG A WEEK BEFORE DISCONTINUING AT THE END OF AUG BEGINNING OF SEPT. 2003
     Route: 048
     Dates: start: 19970209, end: 20030801
  3. SERZONE [Suspect]
     Indication: PANIC DISORDER
     Dosage: TAPERED OFF TO 75 MG A WEEK BEFORE DISCONTINUING AT THE END OF AUG BEGINNING OF SEPT. 2003
     Route: 048
     Dates: start: 19970209, end: 20030801
  4. KLONOPIN [Concomitant]
     Dosage: PATIENT TAKES 0.5-0.75 DAILY FOR 1.5-2 YEARS BUT DOSE SUPPOSED TO BE 0.5MG TWICE DAILY

REACTIONS (3)
  - ASCITES [None]
  - HEPATIC STEATOSIS [None]
  - HEPATITIS [None]
